FAERS Safety Report 6657765-8 (Version None)
Quarter: 2010Q1

REPORT INFORMATION
  Report Type: 
  Country: None (occurrence: None)
  Receive Date: 20100330
  Receipt Date: 20100120
  Transmission Date: 20100710
  Serious: No
  Sender: FDA-Public Use
  Company Number: US-TYCO HEALTHCARE/MALLINCKRODT-T201000543

PATIENT
  Sex: Male

DRUGS (4)
  1. METHADOSE [Suspect]
     Dosage: UNK
  2. PEGASYS [Suspect]
     Indication: HEPATITIS C
     Dosage: UNK
     Dates: end: 20090801
  3. RIBAVIRIN [Suspect]
     Indication: HEPATITIS C
     Dosage: UNK
     Dates: end: 20090801
  4. NEUPOGEN [Concomitant]
     Dosage: UNK

REACTIONS (4)
  - ALANINE AMINOTRANSFERASE DECREASED [None]
  - ASPARTATE AMINOTRANSFERASE DECREASED [None]
  - DEPRESSION [None]
  - WHITE BLOOD CELL COUNT DECREASED [None]
